FAERS Safety Report 5612057-0 (Version None)
Quarter: 2008Q1

REPORT INFORMATION
  Report Type: 
  Country: None (occurrence: None)
  Receive Date: 20080128
  Receipt Date: 20080117
  Transmission Date: 20080703
  Serious: Yes (Hospitalization)
  Sender: FDA-Public Use
  Company Number: 8029305

PATIENT
  Age: 36 Year
  Sex: Male

DRUGS (5)
  1. XYZALL [Suspect]
     Indication: PRURITUS
     Dosage: 5 MG /D PO
     Route: 048
     Dates: start: 20071101, end: 20071103
  2. ORBENINE [Suspect]
     Indication: FURUNCLE
     Dosage: 1 G 3/D PO
     Route: 048
     Dates: start: 20071101, end: 20071103
  3. PLUREXID [Suspect]
     Indication: FURUNCLE
     Dosage: CUT
     Route: 003
     Dates: start: 20071101, end: 20071102
  4. BISEPTINE [Suspect]
     Indication: FURUNCLE
     Dosage: 2/D CUT
     Route: 003
     Dates: start: 20071101, end: 20071102
  5. MUPIDERM [Suspect]
     Indication: FURUNCLE
     Dosage: 2/D CUT
     Route: 003
     Dates: start: 20071101, end: 20071103

REACTIONS (5)
  - ACUTE GENERALISED EXANTHEMATOUS PUSTULOSIS [None]
  - CAUSTIC INJURY [None]
  - DERMATITIS [None]
  - FOLLICULITIS [None]
  - STAPHYLOCOCCAL INFECTION [None]
